FAERS Safety Report 25037702 (Version 3)
Quarter: 2025Q4

REPORT INFORMATION
  Report Type: Spontaneous
  Country: EU (occurrence: EU)
  Receive Date: 20250304
  Receipt Date: 20251112
  Transmission Date: 20260119
  Serious: Yes (Other)
  Sender: MYLAN
  Company Number: EU-SANDOZ-SDZ2025GR008863

PATIENT
  Age: 57 Year
  Sex: Male

DRUGS (14)
  1. TACROLIMUS [Suspect]
     Active Substance: TACROLIMUS
     Indication: Immunosuppressant drug therapy
     Dosage: UNK (WITH TARGET TROUGH LEVELS FOR THE LATTER BETWEEN 6 AND 8 NG/ML)
  2. MYCOPHENOLATE MOFETIL [Suspect]
     Active Substance: MYCOPHENOLATE MOFETIL
     Indication: Immunosuppressant drug therapy
     Dosage: 500 MILLIGRAM, BID
  3. METHYLPREDNISOLONE [Suspect]
     Active Substance: METHYLPREDNISOLONE
     Indication: Immunosuppressant drug therapy
     Dosage: 4 MILLIGRAM, QD
  4. EVEROLIMUS [Suspect]
     Active Substance: EVEROLIMUS
     Indication: Immunosuppressant drug therapy
     Dosage: UNK (WITH TARGET TROUGH LEVELS OF 3-7 NG/ML)
  5. EVEROLIMUS [Suspect]
     Active Substance: EVEROLIMUS
     Dosage: UNK (6 AND 8 NG/ML)
  6. DARBEPOETIN ALFA [Concomitant]
     Active Substance: DARBEPOETIN ALFA
     Indication: Immunosuppressant drug therapy
     Dosage: 20 MICROGRAM, QW
  7. DARBEPOETIN ALFA [Concomitant]
     Active Substance: DARBEPOETIN ALFA
     Indication: Thalassaemia beta
     Dosage: 60 MICROGRAM, QW
  8. DARBEPOETIN ALFA [Concomitant]
     Active Substance: DARBEPOETIN ALFA
     Dosage: UNK (DOSE REDUCED)
  9. IRBESARTAN [Concomitant]
     Active Substance: IRBESARTAN
     Indication: Hypertension
     Dosage: 150 MILLIGRAM, QD
  10. AMLODIPINE [Concomitant]
     Active Substance: AMLODIPINE BESYLATE
     Indication: Hypertension
     Dosage: 5 MILLIGRAM, BID
  11. MOXONIDINE [Concomitant]
     Active Substance: MOXONIDINE
     Indication: Hypertension
     Dosage: 0.3 MILLIGRAM, QD
  12. ATORVASTATIN [Concomitant]
     Active Substance: ATORVASTATIN
     Indication: Product used for unknown indication
     Dosage: 20 MILLIGRAM, QD
  13. LINAGLIPTIN [Concomitant]
     Active Substance: LINAGLIPTIN
     Indication: Product used for unknown indication
     Dosage: 5 MILLIGRAM, QD
  14. DENOSUMAB [Concomitant]
     Active Substance: DENOSUMAB
     Indication: Osteoporosis
     Dosage: 60 MILLIGRAM (60 MG, EVERY 6 MONTHS)

REACTIONS (2)
  - Parvovirus B19 infection [Recovered/Resolved]
  - Aplasia pure red cell [Recovered/Resolved]
